FAERS Safety Report 16772162 (Version 2)
Quarter: 2019Q4

REPORT INFORMATION
  Report Type: Report from Study
  Country: US (occurrence: US)
  Receive Date: 20190904
  Receipt Date: 20191009
  Transmission Date: 20200122
  Serious: No
  Sender: FDA-Public Use
  Company Number: US-EMD SERONO-9096551

PATIENT
  Age: 50 Year
  Sex: Female

DRUGS (2)
  1. MAVENCLAD [Suspect]
     Active Substance: CLADRIBINE
     Indication: MULTIPLE SCLEROSIS
     Dosage: FIRST YEAR FIRST MONTH THERAPY: THE PATIENT RECEIVED TWO TABLETS (EACH OF 10MG) ORALLY ON DAY 1 AND
     Route: 048
     Dates: start: 20190601
  2. MAVENCLAD [Suspect]
     Active Substance: CLADRIBINE
     Dosage: FIRST YEAR SECOND MONTH THERAPY
     Route: 048

REACTIONS (8)
  - Dyskinesia [Unknown]
  - Bone pain [Unknown]
  - Muscle twitching [Unknown]
  - Back pain [Unknown]
  - Fatigue [Unknown]
  - Eye movement disorder [Unknown]
  - Vision blurred [Unknown]
  - Hypoaesthesia [Unknown]

NARRATIVE: CASE EVENT DATE: 20190601
